FAERS Safety Report 14870643 (Version 4)
Quarter: 2023Q2

REPORT INFORMATION
  Report Type: Report from Study
  Country: FR (occurrence: FR)
  Receive Date: 20180509
  Receipt Date: 20230629
  Transmission Date: 20230721
  Serious: Yes (Hospitalization)
  Sender: FDA-Public Use
  Company Number: FR-IPSEN BIOPHARMACEUTICALS, INC.-2018-06366

PATIENT
  Age: 11 Year
  Sex: Male
  Weight: 23 kg

DRUGS (5)
  1. INCRELEX [Suspect]
     Active Substance: MECASERMIN
     Indication: Primary insulin like growth factor-1 deficiency
     Route: 065
     Dates: start: 20140424
  2. INCRELEX [Suspect]
     Active Substance: MECASERMIN
     Route: 065
     Dates: start: 20150128
  3. SOMATROPIN [Concomitant]
     Active Substance: SOMATROPIN
  4. SOMATROPIN [Concomitant]
     Active Substance: SOMATROPIN
  5. ASPIRIN DL-LYSINE [Concomitant]
     Active Substance: ASPIRIN DL-LYSINE

REACTIONS (2)
  - Aural polyp [Recovered/Resolved]
  - Headache [Recovered/Resolved]

NARRATIVE: CASE EVENT DATE: 20140515
